FAERS Safety Report 6183728-5 (Version None)
Quarter: 2009Q2

REPORT INFORMATION
  Report Type: 
  Country: None (occurrence: None)
  Receive Date: 20090508
  Receipt Date: 20090318
  Transmission Date: 20091009
  Serious: No
  Sender: FDA-Public Use
  Company Number: US-BAYER-200916249NA

PATIENT
  Age: 24 Year
  Sex: Female

DRUGS (2)
  1. MIRENA [Suspect]
     Indication: CONTRACEPTION
     Dosage: CONTINUOUS
     Route: 015
     Dates: start: 20071012
  2. AMOXICILLIN [Concomitant]
     Indication: TOOTH INFECTION

REACTIONS (3)
  - HYPOMENORRHOEA [None]
  - OLIGOMENORRHOEA [None]
  - TOOTH INFECTION [None]
